FAERS Safety Report 20486588 (Version 1)
Quarter: 2022Q1

REPORT INFORMATION
  Report Type: Spontaneous
  Country: US (occurrence: None)
  Receive Date: 20220217
  Receipt Date: 20220217
  Transmission Date: 20220423
  Serious: Yes (Death)
  Sender: FDA-Public Use
  Company Number: None

PATIENT
  Age: 18 Year
  Sex: Male
  Weight: 58.95 kg

DRUGS (2)
  1. INVEGA SUSTENNA [Suspect]
     Active Substance: PALIPERIDONE PALMITATE
     Indication: Drug therapy
     Dosage: FREQUENCY : ONCE;?
     Route: 030
     Dates: start: 20220118, end: 20220118
  2. RISPERIDONE [Suspect]
     Active Substance: RISPERIDONE

REACTIONS (4)
  - Product use issue [None]
  - Insurance issue [None]
  - Economic problem [None]
  - Completed suicide [None]

NARRATIVE: CASE EVENT DATE: 20220215
